FAERS Safety Report 5680530-5 (Version None)
Quarter: 2008Q1

REPORT INFORMATION
  Report Type: 
  Country: None (occurrence: None)
  Receive Date: 20080326
  Receipt Date: 20080310
  Transmission Date: 20080703
  Serious: Yes (Hospitalization)
  Sender: FDA-Public Use
  Company Number: DE-ASTRAZENECA-2008SE01108

PATIENT
  Age: 25937 Day
  Sex: Female
  Weight: 95 kg

DRUGS (9)
  1. BLOPRESS PLUS [Suspect]
     Indication: HYPERTENSION
     Dosage: CANDESARTAN CILEXETIL 16 MG; HCT 12,5 MG
     Route: 048
     Dates: start: 20071107, end: 20080121
  2. METOPROLOL RETARD [Concomitant]
     Indication: HYPERTENSION
     Route: 048
     Dates: start: 20050101, end: 20080101
  3. MOXONIDINE [Concomitant]
     Indication: HYPERTENSION
     Route: 048
     Dates: start: 20070201, end: 20080101
  4. LERCANIDIPINE [Concomitant]
     Indication: HYPERTENSION
     Route: 048
     Dates: start: 20061101, end: 20080101
  5. NIFEDIPINE [Concomitant]
     Indication: HYPERTENSION
     Route: 048
     Dates: start: 20070501, end: 20080101
  6. METFORMIN [Concomitant]
     Indication: DIABETES MELLITUS
     Route: 048
     Dates: end: 20080101
  7. GLIMEPIRIDE [Concomitant]
     Indication: DIABETES MELLITUS
     Route: 048
     Dates: end: 20080101
  8. SIMVASTATIN [Concomitant]
     Indication: LIPID METABOLISM DISORDER
     Route: 048
     Dates: end: 20080101
  9. BUDESONIDE [Concomitant]
     Route: 048

REACTIONS (1)
  - CEREBROVASCULAR ACCIDENT [None]
